FAERS Safety Report 4391928-X (Version None)
Quarter: 2004Q3

REPORT INFORMATION
  Report Type: 
  Country: None (occurrence: None)
  Receive Date: 20040701
  Receipt Date: 20040614
  Transmission Date: 20050211
  Serious: Yes (Hospitalization, Other)
  Sender: FDA-Public Use
  Company Number: USA040670088

PATIENT
  Age: 76 Year
  Sex: Female
  Weight: 69 kg

DRUGS (1)
  1. HUMALOG [Suspect]
     Dosage: 20 U DAY
     Dates: start: 20000101

REACTIONS (4)
  - BACK INJURY [None]
  - FRACTURE [None]
  - PHARMACEUTICAL PRODUCT COMPLAINT [None]
  - ROAD TRAFFIC ACCIDENT [None]
